FAERS Safety Report 15184406 (Version 1)
Quarter: 2018Q3

REPORT INFORMATION
  Report Type: Spontaneous
  Country: US (occurrence: US)
  Receive Date: 20180625
  Receipt Date: 20180625
  Transmission Date: 20181010
  Serious: Yes (Life-Threatening, Disabling)
  Sender: FDA-Public Use
  Company Number: None

PATIENT
  Age: 72 Year
  Sex: Female
  Weight: 81.19 kg

DRUGS (4)
  1. PAIN RELIEVER OVER COUNTER [Concomitant]
  2. VITAMINS [Concomitant]
     Active Substance: VITAMINS
  3. MIRTAZAPINE 30MG 1 A DAY [Concomitant]
  4. REXULTI [Suspect]
     Active Substance: BREXPIPRAZOLE
     Indication: DEPRESSION
     Route: 048
     Dates: end: 20180529

REACTIONS (15)
  - Nightmare [None]
  - Social problem [None]
  - Fall [None]
  - Balance disorder [None]
  - Visual impairment [None]
  - Headache [None]
  - Suicidal ideation [None]
  - Agitation [None]
  - Pain in extremity [None]
  - Gait disturbance [None]
  - Screaming [None]
  - Decreased activity [None]
  - Weight increased [None]
  - Unevaluable event [None]
  - Insomnia [None]

NARRATIVE: CASE EVENT DATE: 20180420
